FAERS Safety Report 4278858-9 (Version None)
Quarter: 2004Q1

REPORT INFORMATION
  Report Type: 
  Country: None (occurrence: None)
  Receive Date: 20040122
  Receipt Date: 20040122
  Transmission Date: 20041129
  Serious: Yes (Other)
  Sender: FDA-Public Use
  Company Number: None

PATIENT
  Age: 28 Year
  Sex: Female

DRUGS (2)
  1. ACYCLOVIR [Suspect]
     Indication: HERPES SIMPLEX
     Dosage: 400 MG TID PO
     Route: 048
     Dates: start: 20031103, end: 20031105
  2. LOESTRIN 1.5/30 [Concomitant]

REACTIONS (2)
  - PRURITUS [None]
  - RASH [None]
